FAERS Safety Report 4643581-5 (Version None)
Quarter: 2005Q2

REPORT INFORMATION
  Report Type: 
  Country: None (occurrence: None)
  Receive Date: 20050425
  Receipt Date: 20050225
  Transmission Date: 20051028
  Serious: Yes (Other)
  Sender: FDA-Public Use
  Company Number: US-BOEHRINGER INGELHEIM PHARMMACEUTICALS, INC.-2005-BP-03448BP

PATIENT
  Sex: Male

DRUGS (1)
  1. PERSANTINE [Suspect]
     Indication: CARDIAC STRESS TEST
     Dates: start: 20041201

REACTIONS (4)
  - CHEST PAIN [None]
  - DYSGEUSIA [None]
  - HEADACHE [None]
  - STOMACH DISCOMFORT [None]
